FAERS Safety Report 19576478 (Version 2)
Quarter: 2021Q4

REPORT INFORMATION
  Report Type: Report from Study
  Country: RU (occurrence: RU)
  Receive Date: 20210719
  Receipt Date: 20211221
  Transmission Date: 20220303
  Serious: Yes (Hospitalization)
  Sender: FDA-Public Use
  Company Number: RU-CELGENE-RUS-20210608298

PATIENT
  Age: 52 Year
  Sex: Male
  Weight: 89 kg

DRUGS (3)
  1. AZACITIDINE [Suspect]
     Active Substance: AZACITIDINE
     Indication: Acute myeloid leukaemia
     Dosage: 50 MILLIGRAM/SQ. METER
     Route: 058
     Dates: start: 20201015, end: 20201015
  2. AZACITIDINE [Suspect]
     Active Substance: AZACITIDINE
     Dosage: 36 MILLIGRAM/SQ. METER
     Route: 058
     Dates: start: 20201016, end: 20210312
  3. VENETOCLAX [Suspect]
     Active Substance: VENETOCLAX
     Indication: Acute myeloid leukaemia
     Dosage: 400 MILLIGRAM
     Route: 048
     Dates: start: 20201015, end: 20210311

REACTIONS (1)
  - Neutropenia [Recovered/Resolved]

NARRATIVE: CASE EVENT DATE: 20210309
